FAERS Safety Report 9940556 (Version 2)
Quarter: 2014Q1

REPORT INFORMATION
  Report Type: Spontaneous
  Country: US (occurrence: US)
  Receive Date: 20140303
  Receipt Date: 20140312
  Transmission Date: 20141002
  Serious: Yes (Other)
  Sender: FDA-Public Use
  Company Number: US-LUNDBECK-DKLU1096977

PATIENT
  Age: 6 Year
  Sex: Female
  Weight: 19 kg

DRUGS (22)
  1. SABRIL (TABLET) [Suspect]
     Indication: CONVULSION
     Route: 048
     Dates: start: 20140116
  2. SABRIL (TABLET) [Suspect]
     Dates: start: 20140120
  3. ROBINUL [Suspect]
     Indication: PRODUCT USED FOR UNKNOWN INDICATION
     Route: 048
  4. PHENOBARBITAL [Concomitant]
     Indication: CONVULSION
     Route: 048
  5. NEXIUM [Concomitant]
     Indication: PRODUCT USED FOR UNKNOWN INDICATION
     Route: 048
  6. NEXIUM [Concomitant]
     Route: 048
  7. CARAFATE [Concomitant]
     Indication: PRODUCT USED FOR UNKNOWN INDICATION
     Route: 048
  8. CARNITOR [Concomitant]
     Indication: PRODUCT USED FOR UNKNOWN INDICATION
     Route: 048
  9. MYCOSTATIN [Concomitant]
     Indication: PRODUCT USED FOR UNKNOWN INDICATION
     Dosage: 1 APPLICATION
  10. XYLOCAINE [Concomitant]
     Indication: PAIN
     Dosage: 1 APPLICATION
  11. SILVADENE [Concomitant]
     Indication: SKIN BURNING SENSATION
     Dosage: APPLY TO BURNED SKIN
     Route: 050
  12. DR. ABDULLAHS PASTE [Concomitant]
     Indication: SKIN IRRITATION
     Dosage: 1 APPLICATION
  13. ZINC OXIDE [Concomitant]
     Indication: WOUND TREATMENT
     Dosage: 1 APPLICATION
  14. GLYCOLAX [Concomitant]
     Indication: PRODUCT USED FOR UNKNOWN INDICATION
     Route: 048
  15. PROVENTIL [Concomitant]
     Indication: PRODUCT USED FOR UNKNOWN INDICATION
     Route: 050
  16. PROVENTIL [Concomitant]
     Indication: WHEEZING
     Dosage: 2 PUFFS
     Route: 050
  17. PROVENTIL [Concomitant]
     Indication: DYSPNOEA
     Dosage: 2 PUFFS BY MOTYH
     Route: 050
  18. BACITRACIN [Concomitant]
     Indication: PRODUCT USED FOR UNKNOWN INDICATION
     Dosage: 1 APPLICATION
  19. CHOLECALCIFEROL [Concomitant]
     Indication: PRODUCT USED FOR UNKNOWN INDICATION
     Dosage: 2000 UNITS/ML
     Route: 048
  20. FISH OIL [Concomitant]
     Indication: PRODUCT USED FOR UNKNOWN INDICATION
     Route: 048
  21. CULTURELLE LACTOBACILLUS [Concomitant]
     Indication: PRODUCT USED FOR UNKNOWN INDICATION
     Route: 048
  22. SELENIUM [Concomitant]
     Indication: PRODUCT USED FOR UNKNOWN INDICATION

REACTIONS (4)
  - Neurogenic bladder [Recovered/Resolved]
  - Convulsion [Unknown]
  - Hypersomnia [Unknown]
  - Somnolence [Unknown]
